FAERS Safety Report 15293232 (Version 1)
Quarter: 2018Q3

REPORT INFORMATION
  Report Type: Spontaneous
  Country: US (occurrence: US)
  Receive Date: 20180820
  Receipt Date: 20180820
  Transmission Date: 20181010
  Serious: Yes (Other)
  Sender: FDA-Public Use
  Company Number: US-TEVA-811177USA

PATIENT
  Age: 19 Year
  Sex: Female

DRUGS (6)
  1. FLUDROCORTISONE [Concomitant]
     Active Substance: FLUDROCORTISONE
  2. ONDANSETRON [Concomitant]
     Active Substance: ONDANSETRON
  3. EQUATE ACETAMINOPHEN [Concomitant]
     Active Substance: ACETAMINOPHEN
  4. DOXYCYCLINE. [Suspect]
     Active Substance: DOXYCYCLINE
     Indication: SINUSITIS
     Dates: start: 2017
  5. DOXYCYCLINE. [Suspect]
     Active Substance: DOXYCYCLINE
     Indication: VAGINITIS CHLAMYDIAL
     Dates: start: 20170921
  6. ESCITALOPRAM [Concomitant]
     Active Substance: ESCITALOPRAM OXALATE
     Dates: start: 2015

REACTIONS (2)
  - Diarrhoea [Recovering/Resolving]
  - Diarrhoea haemorrhagic [Recovered/Resolved]
